FAERS Safety Report 10085900 (Version 1)
Quarter: 2014Q2

REPORT INFORMATION
  Report Type: Spontaneous
  Country: ES (occurrence: ES)
  Receive Date: 20140418
  Receipt Date: 20140418
  Transmission Date: 20141212
  Serious: Yes (Death, Other)
  Sender: FDA-Public Use
  Company Number: ES-CELGENEUS-144-21660-14041836

PATIENT
  Age: 53 Year
  Sex: Female

DRUGS (1)
  1. ABRAXANE [Suspect]
     Indication: BREAST CANCER
     Route: 065

REACTIONS (4)
  - Breast cancer [Fatal]
  - Metastases to central nervous system [Unknown]
  - Loss of consciousness [Unknown]
  - Bedridden [Unknown]
